FAERS Safety Report 19302672 (Version 1)
Quarter: 2021Q2

REPORT INFORMATION
  Report Type: Report from Study
  Country: US (occurrence: US)
  Receive Date: 20210525
  Receipt Date: 20210525
  Transmission Date: 20210717
  Serious: Yes (Other)
  Sender: FDA-Public Use
  Company Number: US-VERTEX PHARMACEUTICALS-2021-004543

PATIENT
  Sex: Female

DRUGS (1)
  1. TRIKAFTA [Suspect]
     Active Substance: ELEXACAFTOR\IVACAFTOR\TEZACAFTOR
     Indication: CYSTIC FIBROSIS
     Dosage: 100 MG ELEXACAFTOR/ 50 MG TEZACAFTOR/ 75 MG IVACAFTOR AND 150 MG IVACAFTOR, FREQ UNK
     Route: 048
     Dates: start: 20210111

REACTIONS (19)
  - Feeling abnormal [Recovered/Resolved]
  - Anger [Recovered/Resolved]
  - Glare [Recovered/Resolved]
  - Nausea [Recovered/Resolved]
  - Headache [Recovered/Resolved]
  - Vomiting [Recovered/Resolved]
  - Productive cough [Recovered/Resolved]
  - Impatience [Recovered/Resolved]
  - Abortion [Recovered/Resolved]
  - Sleep disorder [Recovered/Resolved]
  - Anxiety [Recovered/Resolved]
  - Dizziness [Recovered/Resolved]
  - Exposure during pregnancy [Unknown]
  - Aggression [Recovered/Resolved]
  - Eye movement disorder [Recovered/Resolved]
  - Haematochezia [Recovered/Resolved]
  - Weight increased [Recovered/Resolved]
  - Photosensitivity reaction [Recovered/Resolved]
  - Thinking abnormal [Recovered/Resolved]

NARRATIVE: CASE EVENT DATE: 2021
